FAERS Safety Report 19193958 (Version 1)
Quarter: 2021Q2

REPORT INFORMATION
  Report Type: Spontaneous
  Country: CN (occurrence: CN)
  Receive Date: 20210429
  Receipt Date: 20210429
  Transmission Date: 20210717
  Serious: Yes (Other)
  Sender: FDA-Public Use
  Company Number: CN-ACCORD-222781

PATIENT
  Age: 31 Year
  Sex: Female

DRUGS (2)
  1. ACETYLSALICYLIC ACID [Suspect]
     Active Substance: ASPIRIN
     Indication: SUBARACHNOID HAEMORRHAGE
     Route: 048
  2. CLOPIDOGREL [Suspect]
     Active Substance: CLOPIDOGREL BISULFATE
     Indication: SUBARACHNOID HAEMORRHAGE
     Dosage: RESTARTED WITH DOSE OF 75 MG/DAY
     Route: 048

REACTIONS (2)
  - Gingival bleeding [Unknown]
  - Ecchymosis [Unknown]
